FAERS Safety Report 6635601-3 (Version None)
Quarter: 2010Q1

REPORT INFORMATION
  Report Type: 
  Country: None (occurrence: None)
  Receive Date: 20100315
  Receipt Date: 20100304
  Transmission Date: 20100710
  Serious: Yes (Hospitalization)
  Sender: FDA-Public Use
  Company Number: US-MERCK-1003USA00801

PATIENT
  Age: 22 Year
  Sex: Female

DRUGS (10)
  1. ZOCOR [Suspect]
     Route: 048
     Dates: start: 20100221, end: 20100221
  2. CELEXA [Suspect]
     Indication: DEPRESSION
     Route: 048
     Dates: start: 20100208, end: 20100221
  3. CELEXA [Suspect]
     Route: 048
     Dates: start: 20100222, end: 20100222
  4. RISPERDAL [Concomitant]
     Indication: BIPOLAR DISORDER
     Route: 065
  5. RISPERDAL [Concomitant]
     Indication: SCHIZOAFFECTIVE DISORDER
     Route: 065
  6. SEROQUEL [Concomitant]
     Indication: BIPOLAR DISORDER
     Route: 065
  7. SEROQUEL [Concomitant]
     Indication: SCHIZOAFFECTIVE DISORDER
     Route: 065
  8. TEGRETOL [Concomitant]
     Indication: BIPOLAR DISORDER
     Route: 065
  9. XANAX [Concomitant]
     Indication: ANXIETY
     Route: 065
  10. KLONOPIN [Concomitant]
     Indication: ANXIETY
     Route: 065

REACTIONS (3)
  - INTENTIONAL OVERDOSE [None]
  - SOMNOLENCE [None]
  - SUICIDE ATTEMPT [None]
